FAERS Safety Report 5036593-3 (Version None)
Quarter: 2006Q2

REPORT INFORMATION
  Report Type: 
  Country: None (occurrence: None)
  Receive Date: 20060614
  Receipt Date: 20060509
  Transmission Date: 20061013
  Serious: Yes (Other)
  Sender: FDA-Public Use
  Company Number: BDI-008232

PATIENT
  Age: 66 Year
  Sex: Male
  Weight: 79.55 kg

DRUGS (5)
  1. MULTIHANCE [Suspect]
     Indication: DEAFNESS
     Dosage: 20 ML ONCE IV
     Route: 042
     Dates: start: 20060508, end: 20060508
  2. MULTIHANCE [Suspect]
     Indication: NUCLEAR MAGNETIC RESONANCE IMAGING BRAIN
     Dosage: 20 ML ONCE IV
     Route: 042
     Dates: start: 20060508, end: 20060508
  3. LIPITOR [Concomitant]
  4. ATACAND [Concomitant]
  5. ANTI-INFLAMMATORY [Concomitant]

REACTIONS (1)
  - NUCLEAR MAGNETIC RESONANCE IMAGING [None]
